FAERS Safety Report 5773553-9 (Version None)
Quarter: 2008Q2

REPORT INFORMATION
  Report Type: 
  Country: None (occurrence: None)
  Receive Date: 20080616
  Receipt Date: 20080606
  Transmission Date: 20081010
  Serious: Yes (Other)
  Sender: FDA-Public Use
  Company Number: GB-BAYER-200811472BNE

PATIENT
  Age: 31 Year
  Sex: Female
  Weight: 58 kg

DRUGS (2)
  1. MIRENA [Suspect]
     Indication: ANALGESIA
     Route: 015
     Dates: start: 20040101, end: 20050309
  2. PROVERA [Concomitant]
     Indication: PREMENSTRUAL SYNDROME
     Route: 048
     Dates: start: 20051201, end: 20051201

REACTIONS (2)
  - HYPOAESTHESIA [None]
  - HYPOAESTHESIA FACIAL [None]
